FAERS Safety Report 5197855-2 (Version None)
Quarter: 2006Q4

REPORT INFORMATION
  Report Type: 
  Country: None (occurrence: None)
  Receive Date: 20061228
  Receipt Date: 20061218
  Transmission Date: 20070319
  Serious: No
  Sender: FDA-Public Use
  Company Number: 2006US-02870

PATIENT
  Age: 67 Year
  Sex: Female

DRUGS (2)
  1. CEPHALEXIN [Suspect]
     Indication: DRUG USE FOR UNKNOWN INDICATION
     Dosage: 500 MG, QD
     Dates: start: 20060709, end: 20060709
  2. HYZAAR [Concomitant]

REACTIONS (4)
  - FEELING HOT [None]
  - HYPERSENSITIVITY [None]
  - OCULAR HYPERAEMIA [None]
  - PHARMACEUTICAL PRODUCT COMPLAINT [None]
